FAERS Safety Report 8584717-3 (Version None)
Quarter: 2012Q3

REPORT INFORMATION
  Report Type: 
  Country: None (occurrence: None)
  Receive Date: 20120810
  Receipt Date: 20120801
  Transmission Date: 20120928
  Serious: Yes (Other)
  Sender: FDA-Public Use
  Company Number: JP-SANOFI-AVENTIS-2011SA055498

PATIENT
  Age: 80 Year
  Sex: Female

DRUGS (3)
  1. AMARYL [Suspect]
     Route: 048
  2. AMARYL [Suspect]
     Route: 048
  3. AMARYL [Suspect]
     Route: 048

REACTIONS (1)
  - HAEMORRHAGE SUBCUTANEOUS [None]
